FAERS Safety Report 6604370-5 (Version None)
Quarter: 2010Q1

REPORT INFORMATION
  Report Type: 
  Country: None (occurrence: None)
  Receive Date: 20100226
  Receipt Date: 20090908
  Transmission Date: 20100710
  Serious: No
  Sender: FDA-Public Use
  Company Number: A0806348A

PATIENT
  Age: 42 Year
  Sex: Male

DRUGS (2)
  1. LAMICTAL CD [Suspect]
     Indication: ANXIETY
     Route: 048
     Dates: start: 20090601
  2. KLONOPIN [Concomitant]

REACTIONS (5)
  - ANXIETY [None]
  - DISTURBANCE IN ATTENTION [None]
  - FATIGUE [None]
  - LETHARGY [None]
  - NAUSEA [None]
